FAERS Safety Report 17649284 (Version 1)
Quarter: 2020Q2

REPORT INFORMATION
  Report Type: Spontaneous
  Country: US (occurrence: US)
  Receive Date: 20200409
  Receipt Date: 20200409
  Transmission Date: 20200713
  Serious: Yes (Hospitalization)
  Sender: FDA-Public Use
  Company Number: US-HORIZON-PRE-0111-2020

PATIENT
  Age: 32 Year
  Sex: Female

DRUGS (6)
  1. RIFAXIMIN. [Concomitant]
     Active Substance: RIFAXIMIN
     Indication: HYPERAMMONAEMIA
  2. CITRULLINE [Concomitant]
     Active Substance: CITRULLINE
     Indication: HYPERAMMONAEMIA
     Dosage: 3G Q.I.D
  3. PREDNISONE. [Suspect]
     Active Substance: PREDNISONE
     Indication: RASH
  4. LACTULOSE. [Concomitant]
     Active Substance: LACTULOSE
     Indication: HYPERAMMONAEMIA
  5. SODIUM PHENYLACETATE + ARGININE [Concomitant]
     Indication: HYPERAMMONAEMIA
     Dosage: 55ML/M2, ALONG WITH 120ML ARGININE
  6. GLYCEROL PHENYLBUTYRATE [Concomitant]
     Active Substance: GLYCEROL PHENYLBUTYRATE
     Indication: HYPERAMMONAEMIA
     Dosage: 2.5ML TID

REACTIONS (3)
  - Condition aggravated [Unknown]
  - Ammonia increased [Recovered/Resolved]
  - Hyperammonaemic encephalopathy [Unknown]
